FAERS Safety Report 24583931 (Version 1)
Quarter: 2024Q4

REPORT INFORMATION
  Report Type: Spontaneous
  Country: US (occurrence: None)
  Receive Date: 20241105
  Receipt Date: 20241105
  Transmission Date: 20250115
  Serious: Yes (Death)
  Sender: Public
  Company Number: None

PATIENT
  Age: 54 Year
  Sex: Male
  Weight: 132.8 kg

DRUGS (11)
  1. DALFAMPRIDINE [Suspect]
     Active Substance: DALFAMPRIDINE
     Indication: Product used for unknown indication
     Dosage: FREQUENCY : DAILY;?
     Route: 048
     Dates: start: 20230920
  2. ADVIL [Concomitant]
     Active Substance: IBUPROFEN
  3. SUCRALFATE [Concomitant]
  4. PANTOPRAZOLE [Concomitant]
  5. TRAMADOL [Concomitant]
  6. meclizine [Concomitant]
  7. MORPHINE [Concomitant]
     Active Substance: MORPHINE
  8. ACETAMINOPHEN\HYDROCODONE [Concomitant]
     Active Substance: ACETAMINOPHEN\HYDROCODONE
  9. CARBAMAZEPINE [Concomitant]
  10. prochloperazine [Concomitant]
  11. LORAZEPAM [Concomitant]

REACTIONS (1)
  - Death [None]
